FAERS Safety Report 8264188-7 (Version None)
Quarter: 2012Q2

REPORT INFORMATION
  Report Type: 
  Country: None (occurrence: None)
  Receive Date: 20120403
  Receipt Date: 20120329
  Transmission Date: 20120825
  Serious: Yes (Hospitalization, Disabling)
  Sender: FDA-Public Use
  Company Number: 2011SP051267

PATIENT
  Age: 26 Year
  Sex: Female
  Weight: 113.3993 kg

DRUGS (2)
  1. NUVARING [Suspect]
     Indication: CONTRACEPTION
     Dosage: ;QM;VAG
     Route: 067
     Dates: start: 20070101, end: 20091101
  2. BENADRYL [Suspect]
     Indication: PRODUCT USED FOR UNKNOWN INDICATION

REACTIONS (19)
  - THROMBOSIS [None]
  - DEPRESSION [None]
  - HEADACHE [None]
  - PAIN [None]
  - GLAUCOMA [None]
  - MENSTRUATION IRREGULAR [None]
  - JOINT SWELLING [None]
  - LATEX ALLERGY [None]
  - PAIN IN EXTREMITY [None]
  - CONTUSION [None]
  - DRUG HYPERSENSITIVITY [None]
  - ARTHRALGIA [None]
  - DYSMENORRHOEA [None]
  - VARICOSE VEIN [None]
  - ASTHMA [None]
  - DEEP VEIN THROMBOSIS [None]
  - IMPAIRED WORK ABILITY [None]
  - CHOLELITHIASIS [None]
  - TONSILLECTOMY [None]
